FAERS Safety Report 5519107-0 (Version None)
Quarter: 2007Q4

REPORT INFORMATION
  Report Type: 
  Country: None (occurrence: None)
  Receive Date: 20071116
  Receipt Date: 20071113
  Transmission Date: 20080405
  Serious: Yes (Disabling)
  Sender: FDA-Public Use
  Company Number: IT-BRISTOL-MYERS SQUIBB COMPANY-13981089

PATIENT
  Sex: Male

DRUGS (2)
  1. CISPLATIN [Suspect]
  2. AMOXICILLIN [Suspect]

REACTIONS (2)
  - GAIT DISTURBANCE [None]
  - PARAESTHESIA [None]
